FAERS Safety Report 13989101 (Version 1)
Quarter: 2017Q3

REPORT INFORMATION
  Report Type: Spontaneous
  Country: US (occurrence: None)
  Receive Date: 20170919
  Receipt Date: 20170919
  Transmission Date: 20171128
  Serious: No
  Sender: FDA-Public Use
  Company Number: None

PATIENT
  Age: 32 Year
  Sex: Female
  Weight: 83.01 kg

DRUGS (1)
  1. LEVOTHRYOXINE, 125 UGM [Suspect]
     Active Substance: LEVOTHYROXINE
     Indication: POST PROCEDURAL HYPOTHYROIDISM
     Route: 048

REACTIONS (1)
  - Malabsorption [None]

NARRATIVE: CASE EVENT DATE: 20170804
